FAERS Safety Report 10654268 (Version 1)
Quarter: 2014Q4

REPORT INFORMATION
  Report Type: Spontaneous
  Country: GB (occurrence: GB)
  Receive Date: 20141216
  Receipt Date: 20141216
  Transmission Date: 20150529
  Serious: Yes (Hospitalization, Other)
  Sender: FDA-Public Use
  Company Number: GB-RANBAXY-2014RR-90187

PATIENT
  Age: 32 Year
  Sex: Male

DRUGS (3)
  1. DILTIAZEM [Suspect]
     Active Substance: DILTIAZEM
     Indication: PRODUCT USED FOR UNKNOWN INDICATION
     Dosage: 5040 MG MODIFIED RELEASE
     Route: 048
  2. BISOPROLOL [Suspect]
     Active Substance: BISOPROLOL
     Indication: PRODUCT USED FOR UNKNOWN INDICATION
     Dosage: 200 MG
     Route: 048
  3. SIMVASTATIN. [Suspect]
     Active Substance: SIMVASTATIN
     Indication: PRODUCT USED FOR UNKNOWN INDICATION
     Dosage: 280 MG
     Route: 048

REACTIONS (7)
  - Rhabdomyolysis [Recovering/Resolving]
  - Anuria [Recovering/Resolving]
  - Intentional overdose [Recovering/Resolving]
  - Cardiac arrest [Recovered/Resolved]
  - Respiratory acidosis [Recovering/Resolving]
  - Atrioventricular block complete [Recovering/Resolving]
  - Metabolic acidosis [Recovering/Resolving]
